FAERS Safety Report 24086576 (Version 5)
Quarter: 2024Q3

REPORT INFORMATION
  Report Type: Spontaneous
  Country: US (occurrence: US)
  Receive Date: 20240713
  Receipt Date: 20240815
  Transmission Date: 20241017
  Serious: No
  Sender: ELI LILLY AND CO
  Company Number: US-ELI_LILLY_AND_COMPANY-US202407006935

PATIENT
  Age: 67 Year
  Sex: Female

DRUGS (3)
  1. OMVOH [Suspect]
     Active Substance: MIRIKIZUMAB-MRKZ
     Indication: Colitis ulcerative
     Dosage: 300 MG, UNKNOWN
     Route: 042
     Dates: start: 20240306, end: 20240503
  2. OMVOH [Suspect]
     Active Substance: MIRIKIZUMAB-MRKZ
     Dosage: 200 MG, UNKNOWN
     Route: 065
     Dates: start: 20240810
  3. IRON [Concomitant]
     Active Substance: IRON
     Indication: Product used for unknown indication

REACTIONS (3)
  - Clostridium difficile infection [Recovered/Resolved]
  - Breast cyst [Unknown]
  - Colitis ulcerative [Recovering/Resolving]

NARRATIVE: CASE EVENT DATE: 20240514
